FAERS Safety Report 22377444 (Version 1)
Quarter: 2023Q2

REPORT INFORMATION
  Report Type: Spontaneous
  Country: DE (occurrence: DE)
  Receive Date: 20230529
  Receipt Date: 20230529
  Transmission Date: 20230722
  Serious: Yes (Hospitalization, Other)
  Sender: FDA-Public Use
  Company Number: DE-009507513-2305DEU008539

PATIENT
  Sex: Female

DRUGS (1)
  1. KEYTRUDA [Suspect]
     Active Substance: PEMBROLIZUMAB
     Indication: Transitional cell carcinoma
     Dosage: 400 MILLIGRAM, EVERY 6 WEEKS
     Dates: end: 20221215

REACTIONS (2)
  - Hypophysitis [Recovered/Resolved]
  - Electrolyte imbalance [Recovered/Resolved]
